FAERS Safety Report 8367120-0 (Version None)
Quarter: 2012Q2

REPORT INFORMATION
  Report Type: 
  Country: None (occurrence: None)
  Receive Date: 20120517
  Receipt Date: 20120510
  Transmission Date: 20120825
  Serious: No
  Sender: FDA-Public Use
  Company Number: US-ASTRAZENECA-2012SE30446

PATIENT
  Age: 60 Year
  Sex: Female
  Weight: 100.2 kg

DRUGS (3)
  1. SEROQUEL XR [Suspect]
     Indication: DEPRESSION
     Route: 048
     Dates: start: 20120504, end: 20120509
  2. VIIBRYD [Concomitant]
     Indication: DEPRESSION
  3. MEDICATION FOR NIGHTMARE [Concomitant]

REACTIONS (2)
  - HYPERSENSITIVITY [None]
  - ASTHMA [None]
